FAERS Safety Report 6316121-2 (Version None)
Quarter: 2009Q3

REPORT INFORMATION
  Report Type: 
  Country: None (occurrence: None)
  Receive Date: 20090820
  Receipt Date: 20090817
  Transmission Date: 20100115
  Serious: Yes (Death, Hospitalization, Other)
  Sender: FDA-Public Use
  Company Number: PHEH2009US08877

PATIENT
  Sex: Male

DRUGS (2)
  1. GLEEVEC [Suspect]
     Dosage: 400 MG DAILY
     Route: 048
  2. WARFARIN SODIUM [Suspect]
     Indication: CARDIAC VALVE DISEASE

REACTIONS (3)
  - CARDIAC VALVE PROSTHESIS USER [None]
  - CEREBRAL HAEMORRHAGE [None]
  - DEATH [None]
